FAERS Safety Report 21694883 (Version 1)
Quarter: 2022Q4

REPORT INFORMATION
  Report Type: Spontaneous
  Country: CN (occurrence: CN)
  Receive Date: 20221207
  Receipt Date: 20221207
  Transmission Date: 20230113
  Serious: Yes (Hospitalization, Other)
  Sender: FDA-Public Use
  Company Number: CN-009507513-2212CHN002239

PATIENT
  Age: 50 Year
  Sex: Male

DRUGS (4)
  1. CILASTATIN SODIUM\IMIPENEM [Suspect]
     Active Substance: CILASTATIN SODIUM\IMIPENEM
     Indication: Anti-infective therapy
     Dosage: 1 G, EVERY 6 HOURS
     Route: 041
     Dates: start: 20221030, end: 20221114
  2. BERBERINE [Concomitant]
     Active Substance: BERBERINE
     Dosage: 0.1 GRAM, TID
     Route: 048
     Dates: start: 20221017, end: 20221103
  3. MONTMORILLONITE [Concomitant]
     Active Substance: MONTMORILLONITE
     Dosage: 3 GRAM, TID
     Dates: start: 20221101, end: 20221105
  4. LIVE COMBINED BIFIDOBACTERIUM, LACTOBACILLUS AND ENTEROCOCCUS [Concomitant]
     Dosage: UNK

REACTIONS (2)
  - Gastrointestinal infection [Unknown]
  - Hyperpyrexia [Unknown]

NARRATIVE: CASE EVENT DATE: 20221108
